FAERS Safety Report 4491383-5 (Version None)
Quarter: 2004Q4

REPORT INFORMATION
  Report Type: 
  Country: None (occurrence: None)
  Receive Date: 20041029
  Receipt Date: 20041018
  Transmission Date: 20050328
  Serious: Yes (Death)
  Sender: FDA-Public Use
  Company Number: 2004US001281

PATIENT
  Age: 5 Year
  Sex: Male

DRUGS (4)
  1. PROGRAF [Suspect]
     Indication: GRAFT VERSUS HOST DISEASE
     Dosage: 0.03 MG/KG, UID/QD, INTRAVENOUS
     Route: 042
  2. PROGRAF [Suspect]
     Indication: PROPHYLAXIS
     Dosage: 0.03 MG/KG, UID/QD, INTRAVENOUS
     Route: 042
  3. MYCOPHENOLATE MOFETIL (MYCOPHENOLATE MOFETIL) [Suspect]
     Indication: GRAFT VERSUS HOST DISEASE
     Dosage: 15.00 MG/KG
  4. MYCOPHENOLATE MOFETIL (MYCOPHENOLATE MOFETIL) [Suspect]
     Indication: PROPHYLAXIS
     Dosage: 15.00 MG/KG

REACTIONS (4)
  - GRAFT VERSUS HOST DISEASE [None]
  - MALIGNANT NEOPLASM PROGRESSION [None]
  - NEUROBLASTOMA [None]
  - POST PROCEDURAL COMPLICATION [None]
